FAERS Safety Report 8831064 (Version 1)
Quarter: 2012Q4

REPORT INFORMATION
  Report Type: Spontaneous
  Country: US (occurrence: None)
  Receive Date: 20121005
  Receipt Date: 20121005
  Transmission Date: 20130627
  Serious: No
  Sender: FDA-Public Use
  Company Number: None

PATIENT
  Age: 19 Year
  Sex: Male
  Weight: 68.04 kg

DRUGS (1)
  1. CONCERTA [Suspect]
     Indication: ATTENTION DEFICIT-HYPERACTIVITY DISORDER
     Dosage: tab 1 qd of each over 5 years

REACTIONS (4)
  - Product substitution issue [None]
  - Distractibility [None]
  - Disturbance in attention [None]
  - Disturbance in attention [None]
